FAERS Safety Report 17917179 (Version 1)
Quarter: 2020Q2

REPORT INFORMATION
  Report Type: Spontaneous
  Country: US (occurrence: US)
  Receive Date: 20200619
  Receipt Date: 20200619
  Transmission Date: 20200714
  Serious: Yes (Other)
  Sender: FDA-Public Use
  Company Number: US-HIKMA PHARMACEUTICALS USA INC.-US-H14001-20-02885

PATIENT
  Sex: Female

DRUGS (3)
  1. SUBOXONE [Suspect]
     Active Substance: BUPRENORPHINE HYDROCHLORIDE\NALOXONE HYDROCHLORIDE
     Indication: PRODUCT USED FOR UNKNOWN INDICATION
     Route: 065
  2. KETAMINE [Suspect]
     Active Substance: KETAMINE
     Route: 045
  3. KETAMINE [Suspect]
     Active Substance: KETAMINE
     Indication: WITHDRAWAL SYNDROME
     Route: 065

REACTIONS (4)
  - Mental disorder [Unknown]
  - Drug ineffective [Unknown]
  - Malaise [Unknown]
  - Withdrawal syndrome [Unknown]
